FAERS Safety Report 5194553-6 (Version None)
Quarter: 2006Q4

REPORT INFORMATION
  Report Type: 
  Country: None (occurrence: None)
  Receive Date: 20061221
  Receipt Date: 20061208
  Transmission Date: 20070319
  Serious: Yes (Other)
  Sender: FDA-Public Use
  Company Number: 15362

PATIENT
  Age: 41 Year
  Sex: Female
  Weight: 70 kg

DRUGS (1)
  1. EPIRUBICIN [Suspect]
     Indication: BREAST CANCER
     Dosage: 180 MG PER_CYCLE IV
     Route: 042
     Dates: end: 20060913

REACTIONS (2)
  - INJECTED LIMB MOBILITY DECREASED [None]
  - PAIN IN EXTREMITY [None]
